FAERS Safety Report 23391967 (Version 1)
Quarter: 2024Q1

REPORT INFORMATION
  Report Type: Spontaneous
  Country: US (occurrence: US)
  Receive Date: 20240111
  Receipt Date: 20240111
  Transmission Date: 20240410
  Serious: No
  Sender: FDA-Public Use
  Company Number: US-NAPO PHARMACEUTICALS-2023US003392

PATIENT

DRUGS (2)
  1. MYTESI [Suspect]
     Active Substance: CROFELEMER
     Indication: Gastrointestinal inflammation
     Dosage: 125 MG, BID
     Route: 048
     Dates: start: 202303
  2. OTEZLA [Concomitant]
     Active Substance: APREMILAST
     Indication: Product used for unknown indication

REACTIONS (5)
  - Rash [Unknown]
  - Pruritus [Unknown]
  - Skin burning sensation [Unknown]
  - Skin disorder [Unknown]
  - Off label use [Unknown]

NARRATIVE: CASE EVENT DATE: 20230801
